FAERS Safety Report 7314081-9 (Version None)
Quarter: 2011Q1

REPORT INFORMATION
  Report Type: 
  Country: None (occurrence: None)
  Receive Date: 20110225
  Receipt Date: 20100521
  Transmission Date: 20110831
  Serious: No
  Sender: FDA-Public Use
  Company Number: US-MYLANLABS-2010S1007407

PATIENT
  Age: 17 Year
  Sex: Male
  Weight: 59.88 kg

DRUGS (3)
  1. CLARAVIS [Suspect]
     Indication: ACNE CYSTIC
     Dates: start: 20100118
  2. AMNESTEEM [Suspect]
     Indication: ACNE CYSTIC
     Dates: end: 20100323
  3. AMNESTEEM [Suspect]
     Dates: end: 20100323

REACTIONS (3)
  - LETHARGY [None]
  - MOOD ALTERED [None]
  - EDUCATIONAL PROBLEM [None]
